FAERS Safety Report 15730219 (Version 1)
Quarter: 2018Q4

REPORT INFORMATION
  Report Type: Spontaneous
  Country: US (occurrence: US)
  Receive Date: 20181216
  Receipt Date: 20181216
  Transmission Date: 20190205
  Serious: Yes (Disabling)
  Sender: FDA-Public Use
  Company Number: None

PATIENT
  Age: 36 Year
  Sex: Male
  Weight: 67.5 kg

DRUGS (4)
  1. LEVOFLOXACIN. [Suspect]
     Active Substance: LEVOFLOXACIN
     Indication: PROSTATITIS
     Dosage: ?          QUANTITY:1 TABLET(S);??
     Route: 048
     Dates: start: 20181114, end: 20181120
  2. IBUPROFEN. [Concomitant]
     Active Substance: IBUPROFEN
  3. VIBERZI [Concomitant]
     Active Substance: ELUXADOLINE
  4. ESOMEPRAZOLE MAG [Concomitant]
     Active Substance: ESOMEPRAZOLE MAGNESIUM

REACTIONS (9)
  - Weight decreased [None]
  - Peripheral coldness [None]
  - Tendonitis [None]
  - Palpitations [None]
  - Anxiety [None]
  - Decreased appetite [None]
  - Chest discomfort [None]
  - Tremor [None]
  - Dyspnoea [None]

NARRATIVE: CASE EVENT DATE: 20181119
